FAERS Safety Report 6208847-6 (Version None)
Quarter: 2009Q2

REPORT INFORMATION
  Report Type: 
  Country: None (occurrence: None)
  Receive Date: 20090529
  Receipt Date: 20090522
  Transmission Date: 20091009
  Serious: Yes (Other)
  Sender: FDA-Public Use
  Company Number: A0785886A

PATIENT
  Age: 36 Year
  Sex: Female

DRUGS (4)
  1. PAXIL [Suspect]
     Indication: DEPRESSION
     Dosage: 20MG PER DAY
     Route: 048
     Dates: start: 19920101
  2. PAROXETINE HCL [Suspect]
     Indication: DEPRESSION
     Dosage: 20MG PER DAY
     Route: 048
     Dates: start: 20080101, end: 20080101
  3. PAXIL CR [Suspect]
     Indication: DEPRESSION
     Dosage: 25MG PER DAY
     Route: 048
  4. VICODIN [Concomitant]

REACTIONS (11)
  - CRYING [None]
  - EMOTIONAL DISTRESS [None]
  - FALL [None]
  - FEELING ABNORMAL [None]
  - HEADACHE [None]
  - INITIAL INSOMNIA [None]
  - MEMORY IMPAIRMENT [None]
  - SCHIZOPHRENIA [None]
  - TRAUMATIC BRAIN INJURY [None]
  - TREMOR [None]
  - UNEVALUABLE EVENT [None]
